FAERS Safety Report 11340880 (Version 1)
Quarter: 2015Q3

REPORT INFORMATION
  Report Type: Spontaneous
  Country: US (occurrence: None)
  Receive Date: 20150803
  Receipt Date: 20150803
  Transmission Date: 20151125
  Serious: Yes (Disabling)
  Sender: FDA-Public Use
  Company Number: None

PATIENT
  Age: 53 Year
  Sex: Female
  Weight: 90.72 kg

DRUGS (5)
  1. IBUPROFEN. [Concomitant]
     Active Substance: IBUPROFEN
  2. HYDROCHLOROTHIAZIDE 12.5 MG ECONO-MED PHARMACY/GENERIC [Suspect]
     Active Substance: HYDROCHLOROTHIAZIDE
     Indication: OEDEMA PERIPHERAL
     Dosage: TAKEN BY MOUTH
     Dates: start: 20150713, end: 20150731
  3. LISINOPRIL. [Concomitant]
     Active Substance: LISINOPRIL
  4. HYDROCHLOROTHIAZIDE. [Concomitant]
     Active Substance: HYDROCHLOROTHIAZIDE
  5. HYDROCHLOROTHIAZIDE 12.5 MG ECONO-MED PHARMACY/GENERIC [Suspect]
     Active Substance: HYDROCHLOROTHIAZIDE
     Indication: BLOOD PRESSURE INCREASED
     Dosage: TAKEN BY MOUTH
     Dates: start: 20150713, end: 20150731

REACTIONS (8)
  - Dizziness [None]
  - Ocular discomfort [None]
  - Nausea [None]
  - Eye pain [None]
  - Photophobia [None]
  - Ocular hyperaemia [None]
  - Vision blurred [None]
  - Insomnia [None]

NARRATIVE: CASE EVENT DATE: 20150731
